FAERS Safety Report 5675143-5 (Version None)
Quarter: 2008Q1

REPORT INFORMATION
  Report Type: 
  Country: None (occurrence: None)
  Receive Date: 20080320
  Receipt Date: 20080314
  Transmission Date: 20080703
  Serious: Yes (Other)
  Sender: FDA-Public Use
  Company Number: SE-JNJFOC-20080303590

PATIENT
  Age: 29 Year
  Sex: Female

DRUGS (1)
  1. TOPIMAX MIGRANE [Suspect]
     Indication: MIGRAINE PROPHYLAXIS
     Route: 048

REACTIONS (6)
  - ASTHENIA [None]
  - BALANCE DISORDER [None]
  - EYE DISORDER [None]
  - GAIT DISTURBANCE [None]
  - HYPOAESTHESIA FACIAL [None]
  - REFLEXES ABNORMAL [None]
